FAERS Safety Report 5385188-0 (Version None)
Quarter: 2007Q3

REPORT INFORMATION
  Report Type: 
  Country: None (occurrence: None)
  Receive Date: 20070706
  Receipt Date: 20060519
  Transmission Date: 20080115
  Serious: Yes (Other)
  Sender: FDA-Public Use
  Company Number: M-06-0404

PATIENT
  Sex: Female

DRUGS (1)
  1. AMIODARONE HCL [Suspect]
     Dosage: PO
     Route: 048
     Dates: start: 20000101, end: 20040801

REACTIONS (1)
  - PULMONARY TOXICITY [None]
